FAERS Safety Report 6248550-X (Version None)
Quarter: 2009Q2

REPORT INFORMATION
  Report Type: 
  Country: None (occurrence: None)
  Receive Date: 20090629
  Receipt Date: 20090615
  Transmission Date: 20091009
  Serious: Yes (Other)
  Sender: FDA-Public Use
  Company Number: CA-TEVA-199576USA

PATIENT
  Age: 37 Year
  Sex: Female

DRUGS (1)
  1. PLAN B TABLET, LEVONORGESTREL, 0.75MG [Suspect]
     Indication: POST COITAL CONTRACEPTION
     Route: 048
     Dates: start: 20090520, end: 20090520

REACTIONS (2)
  - ABORTION SPONTANEOUS [None]
  - PREGNANCY AFTER POST COITAL CONTRACEPTION [None]
